FAERS Safety Report 9879967 (Version 3)
Quarter: 2014Q1

REPORT INFORMATION
  Report Type: Spontaneous
  Country: JP (occurrence: JP)
  Receive Date: 20140207
  Receipt Date: 20140219
  Transmission Date: 20141002
  Serious: Yes (Hospitalization, Other)
  Sender: FDA-Public Use
  Company Number: JP-009507513-1401JPN014404

PATIENT
  Age: 49 Year
  Sex: Male
  Weight: 86 kg

DRUGS (6)
  1. PEGINTRON [Suspect]
     Indication: CHRONIC HEPATITIS C
     Dosage: 120 MICROGRAM, QD
     Route: 058
     Dates: start: 20140107, end: 20140125
  2. PEGINTRON [Suspect]
     Dosage: DAILY DOSE UNKNOWN
     Route: 058
     Dates: start: 201402
  3. REBETOL [Suspect]
     Indication: CHRONIC HEPATITIS C
     Dosage: 1000MG,QD
     Route: 048
     Dates: start: 20140107, end: 20140125
  4. REBETOL [Suspect]
     Dosage: DAILY DOSE UNKNOWN
     Route: 048
     Dates: start: 201402
  5. SIMEPREVIR [Suspect]
     Indication: CHRONIC HEPATITIS C
     Dosage: 100 MG, QD
     Route: 048
     Dates: start: 20140107, end: 20140125
  6. SIMEPREVIR [Suspect]
     Dosage: DAILY DOSE UNKNOWN
     Route: 048
     Dates: start: 201402

REACTIONS (1)
  - Pancreatitis acute [Recovered/Resolved]
